FAERS Safety Report 9491950 (Version 3)
Quarter: 2013Q4

REPORT INFORMATION
  Report Type: Spontaneous
  Country: JP (occurrence: JP)
  Receive Date: 20130830
  Receipt Date: 20131226
  Transmission Date: 20140711
  Serious: Yes (Other)
  Sender: FDA-Public Use
  Company Number: JP-AMGEN-JPNSP2013060917

PATIENT
  Age: 76 Year
  Sex: Male
  Weight: 55 kg

DRUGS (8)
  1. RANMARK [Suspect]
     Indication: METASTASES TO BONE
     Dosage: 120 MG, UNK
     Route: 058
     Dates: start: 20121002, end: 20130625
  2. TAXOTERE [Concomitant]
     Indication: CHEMOTHERAPY
     Dosage: DAY 1
     Route: 042
     Dates: start: 20120508
  3. SELBEX [Concomitant]
     Dosage: UNKNOWN
     Route: 065
  4. URSO                               /00465701/ [Concomitant]
     Dosage: UNKNOWN
     Route: 065
  5. ASPARA-CA [Concomitant]
     Dosage: UNK
     Route: 065
  6. MAGLAX [Concomitant]
     Dosage: UNKNOWN
     Route: 065
  7. ZOMETA [Concomitant]
     Indication: METASTASES TO BONE
     Dosage: DAY 1
     Route: 042
     Dates: start: 20120508, end: 20120911
  8. PREDONINE                          /00016201/ [Concomitant]
     Indication: CHEMOTHERAPY
     Dosage: EACH AND EVERY DAY
     Route: 048
     Dates: start: 20090331

REACTIONS (1)
  - Osteonecrosis of jaw [Not Recovered/Not Resolved]
